FAERS Safety Report 16310092 (Version 1)
Quarter: 2019Q2

REPORT INFORMATION
  Report Type: Spontaneous
  Country: US (occurrence: US)
  Receive Date: 20190514
  Receipt Date: 20190514
  Transmission Date: 20190711
  Serious: No
  Sender: FDA-Public Use
  Company Number: US-AMGEN-USASP2019074366

PATIENT
  Age: 60 Year
  Sex: Female

DRUGS (4)
  1. FLUVIRINE [Concomitant]
     Dosage: UNK
  2. CEPHALEXINE [Concomitant]
     Active Substance: CEPHALEXIN
     Dosage: 500 MILLIGRAM
  3. ENBREL [Suspect]
     Active Substance: ETANERCEPT
     Indication: PSORIASIS
     Dosage: 50 MILLIGRAM, QWK
     Route: 058
  4. METHYLPREDNIS [Concomitant]
     Dosage: 4 MILLIGRAM

REACTIONS (1)
  - Road traffic accident [Not Recovered/Not Resolved]
